FAERS Safety Report 8777749 (Version 1)
Quarter: 2012Q4

REPORT INFORMATION
  Report Type: 
  Country: CA (occurrence: CA)
  Receive Date: 20120912
  Receipt Date: 20120912
  Transmission Date: 20130627
  Serious: Yes (Hospitalization, Other)
  Sender: FDA-Public Use
  Company Number: PHHY2012CA078548

PATIENT
  Age: 16 Year
  Sex: Male
  Weight: 85.8 kg

DRUGS (3)
  1. CLOZAPINE [Suspect]
     Indication: PSYCHOTIC DISORDER
     Dosage: 200 mg, daily
  2. CLOZAPINE [Suspect]
     Dosage: 900 mg, UNK
  3. FLUOXETINE [Concomitant]
     Dosage: 40 mg, daily

REACTIONS (16)
  - Multi-organ failure [Unknown]
  - Metabolic acidosis [Unknown]
  - Neuroleptic malignant syndrome [Unknown]
  - Depressed level of consciousness [Unknown]
  - Muscle rigidity [Unknown]
  - Dysarthria [Unknown]
  - Dyspnoea [Unknown]
  - Pyrexia [Unknown]
  - Hypertension [Recovering/Resolving]
  - Hyperhidrosis [Unknown]
  - Tachycardia [Unknown]
  - Tachypnoea [Unknown]
  - Pneumonia aspiration [Unknown]
  - Ventricular extrasystoles [Unknown]
  - White blood cell count increased [Unknown]
  - Overdose [Unknown]
